FAERS Safety Report 25538916 (Version 3)
Quarter: 2025Q3

REPORT INFORMATION
  Report Type: Spontaneous
  Country: US (occurrence: US)
  Receive Date: 20250710
  Receipt Date: 20250904
  Transmission Date: 20251020
  Serious: Yes (Other)
  Sender: NOVARTIS
  Company Number: US-002147023-NVSC2025US106696

PATIENT
  Sex: Male

DRUGS (2)
  1. MEKINIST [Suspect]
     Active Substance: TRAMETINIB DIMETHYL SULFOXIDE
     Indication: Nervous system neoplasm benign
     Dosage: 0.5 MG, QD
     Route: 048
     Dates: start: 201706
  2. MEKINIST [Suspect]
     Active Substance: TRAMETINIB DIMETHYL SULFOXIDE
     Dosage: 0.5 MG, QD
     Route: 048
     Dates: start: 202503

REACTIONS (5)
  - Vision blurred [Unknown]
  - Neoplasm [Unknown]
  - Eye disorder [Unknown]
  - Bone disorder [Unknown]
  - Off label use [Unknown]
